FAERS Safety Report 16769324 (Version 3)
Quarter: 2020Q3

REPORT INFORMATION
  Report Type: Report from Study
  Country: US (occurrence: US)
  Receive Date: 20190903
  Receipt Date: 20200710
  Transmission Date: 20201102
  Serious: Yes (Death, Hospitalization)
  Sender: FDA-Public Use
  Company Number: US-ACTELION-A-US2019-191613

PATIENT
  Age: 74 Year
  Sex: Male

DRUGS (1)
  1. OPSUMIT [Suspect]
     Active Substance: MACITENTAN
     Indication: PULMONARY ARTERIAL HYPERTENSION
     Dosage: 10 MG, QD
     Route: 048
     Dates: start: 20141008, end: 20200606

REACTIONS (7)
  - Dyspnoea [Unknown]
  - Heart rate irregular [Recovered/Resolved]
  - Dizziness [Unknown]
  - Blood glucose decreased [Unknown]
  - Product dose omission issue [Recovered/Resolved]
  - Death [Fatal]
  - Oedema peripheral [Not Recovered/Not Resolved]

NARRATIVE: CASE EVENT DATE: 20190530
